FAERS Safety Report 8352967-7 (Version None)
Quarter: 2012Q2

REPORT INFORMATION
  Report Type: 
  Country: None (occurrence: None)
  Receive Date: 20120511
  Receipt Date: 20120502
  Transmission Date: 20120825
  Serious: Yes (Hospitalization, Other)
  Sender: FDA-Public Use
  Company Number: FR-SANOFI-AVENTIS-2012SA030678

PATIENT
  Age: 87 Year
  Sex: Female

DRUGS (8)
  1. APROVEL [Concomitant]
     Route: 048
  2. COUMADIN [Suspect]
     Indication: ATRIAL FIBRILLATION
     Route: 048
     Dates: start: 20120305, end: 20120309
  3. ACETAMINOPHEN [Concomitant]
     Route: 048
  4. LASIX [Concomitant]
     Route: 048
  5. LOVENOX [Suspect]
     Indication: ATRIAL FIBRILLATION
     Route: 058
     Dates: start: 20120313, end: 20120316
  6. ASPIRIN [Concomitant]
     Route: 048
     Dates: end: 20120301
  7. LACTULOSE [Concomitant]
     Route: 048
  8. NEBIVOLOL [Concomitant]
     Route: 048

REACTIONS (4)
  - SKIN NECROSIS [None]
  - HAEMATOMA [None]
  - INTERNATIONAL NORMALISED RATIO INCREASED [None]
  - ANAEMIA [None]
